FAERS Safety Report 8932319 (Version 2)
Quarter: 2012Q4

REPORT INFORMATION
  Report Type: 
  Country: JP (occurrence: JP)
  Receive Date: 20121128
  Receipt Date: 20121221
  Transmission Date: 20130627
  Serious: Yes (Death)
  Sender: FDA-Public Use
  Company Number: JP-PFIZER INC-2012270193

PATIENT

DRUGS (1)
  1. JZOLOFT [Suspect]
     Dosage: UNK
     Route: 048

REACTIONS (2)
  - Platelet count decreased [Fatal]
  - Lymphoma [Fatal]
